FAERS Safety Report 4355189-X (Version None)
Quarter: 2004Q2

REPORT INFORMATION
  Report Type: 
  Country: None (occurrence: None)
  Receive Date: 20040504
  Receipt Date: 20040421
  Transmission Date: 20050107
  Serious: Yes (Death)
  Sender: FDA-Public Use
  Company Number: 2004013789

PATIENT
  Age: 46 Year
  Sex: Female

DRUGS (2)
  1. GEODON [Suspect]
     Indication: ILL-DEFINED DISORDER
     Dosage: 160
     Dates: start: 20031120
  2. OLANZAPINE [Suspect]
     Indication: ILL-DEFINED DISORDER
     Dates: end: 20040212

REACTIONS (5)
  - ARRHYTHMIA [None]
  - CONFUSIONAL STATE [None]
  - DISORIENTATION [None]
  - PSYCHOTIC DISORDER [None]
  - WEIGHT INCREASED [None]
